FAERS Safety Report 13643671 (Version 1)
Quarter: 2017Q2

REPORT INFORMATION
  Report Type: Spontaneous
  Country: FR (occurrence: FR)
  Receive Date: 20170612
  Receipt Date: 20170612
  Transmission Date: 20170830
  Serious: Yes (Other)
  Sender: FDA-Public Use
  Company Number: FR-BAYER-2017-111076

PATIENT
  Sex: Female

DRUGS (1)
  1. MIRENA [Suspect]
     Active Substance: LEVONORGESTREL
     Indication: CONTRACEPTION
     Dosage: 20 MCG/24HR, CONT
     Route: 015
     Dates: start: 201206, end: 20170429

REACTIONS (11)
  - Loss of libido [Unknown]
  - Abnormal weight gain [Unknown]
  - Incontinence [Unknown]
  - Anxiety [Unknown]
  - Trichorrhexis [Unknown]
  - Cervical polyp [Unknown]
  - Seborrhoea [Unknown]
  - Back pain [Unknown]
  - Onychoclasis [Unknown]
  - Abdominal distension [Unknown]
  - Insomnia [Unknown]

NARRATIVE: CASE EVENT DATE: 2012
